FAERS Safety Report 4416487-4 (Version None)
Quarter: 2004Q3

REPORT INFORMATION
  Report Type: 
  Country: None (occurrence: None)
  Receive Date: 20040802
  Receipt Date: 20040721
  Transmission Date: 20050211
  Serious: Yes (Other)
  Sender: FDA-Public Use
  Company Number: M2004-1004

PATIENT
  Age: 77 Year
  Sex: Female

DRUGS (2)
  1. RIMACTANE [Suspect]
     Indication: STAPHYLOCOCCAL INFECTION
     Dosage: 600MG BID
  2. TEICIPLANIN [Suspect]
     Indication: STAPHYLOCOCCAL INFECTION
     Dosage: 600MG QD

REACTIONS (1)
  - HYPERSENSITIVITY [None]
